FAERS Safety Report 17008712 (Version 1)
Quarter: 2019Q4

REPORT INFORMATION
  Report Type: Spontaneous
  Country: US (occurrence: US)
  Receive Date: 20191108
  Receipt Date: 20191108
  Transmission Date: 20200122
  Serious: No
  Sender: FDA-Public Use
  Company Number: US-LUPIN PHARMACEUTICALS INC.-2019-02135

PATIENT
  Sex: Female

DRUGS (1)
  1. MY WAY [Suspect]
     Active Substance: LEVONORGESTREL
     Indication: ABORTION
     Dosage: 1.5 MILLIGRAM, SINGLE
     Route: 048
     Dates: start: 20190327, end: 20190327

REACTIONS (1)
  - Off label use [Unknown]
